FAERS Safety Report 12787990 (Version 1)
Quarter: 2016Q3

REPORT INFORMATION
  Report Type: Spontaneous
  Country: US (occurrence: US)
  Receive Date: 20160928
  Receipt Date: 20160928
  Transmission Date: 20161109
  Serious: Yes (Hospitalization, Other)
  Sender: FDA-Public Use
  Company Number: US-ASTRAZENECA-2016SF01042

PATIENT
  Age: 48 Year
  Sex: Female
  Weight: 62.1 kg

DRUGS (17)
  1. SEROQUEL [Suspect]
     Active Substance: QUETIAPINE FUMARATE
     Indication: DEPRESSION
     Route: 048
     Dates: start: 2010
  2. GENERIC LAMICTAL [Concomitant]
     Active Substance: LAMOTRIGINE
     Indication: DEPRESSION
     Route: 048
     Dates: start: 2010
  3. CLOZAPAM [Concomitant]
     Indication: HEART RATE ABNORMAL
     Route: 048
     Dates: start: 2010
  4. OXYGEN. [Concomitant]
     Active Substance: OXYGEN
     Route: 055
     Dates: start: 2016
  5. SYMBICORT [Suspect]
     Active Substance: BUDESONIDE\FORMOTEROL FUMARATE DIHYDRATE
     Indication: EMPHYSEMA
     Dosage: 160/4.5MCG 2 PUFFS TWICE DAILY
     Route: 055
     Dates: start: 2016
  6. SYMBICORT [Suspect]
     Active Substance: BUDESONIDE\FORMOTEROL FUMARATE DIHYDRATE
     Indication: CHRONIC OBSTRUCTIVE PULMONARY DISEASE
     Dosage: ADDITIONAL TWO PUFFS PER DAY IF NEEDED
     Route: 055
  7. SYMBICORT [Suspect]
     Active Substance: BUDESONIDE\FORMOTEROL FUMARATE DIHYDRATE
     Indication: EMPHYSEMA
     Dosage: ADDITIONAL TWO PUFFS PER DAY IF NEEDED
     Route: 055
  8. SEROQUEL [Suspect]
     Active Substance: QUETIAPINE FUMARATE
     Indication: SCHIZOPHRENIA
     Route: 048
     Dates: start: 2010
  9. SYMBICORT [Suspect]
     Active Substance: BUDESONIDE\FORMOTEROL FUMARATE DIHYDRATE
     Indication: CHRONIC OBSTRUCTIVE PULMONARY DISEASE
     Dosage: 160/4.5MCG 2 PUFFS TWICE DAILY
     Route: 055
     Dates: start: 2016
  10. SEROQUEL [Suspect]
     Active Substance: QUETIAPINE FUMARATE
     Indication: INSOMNIA
     Route: 048
     Dates: start: 2010
  11. KADIAN [Concomitant]
     Active Substance: MORPHINE SULFATE
     Indication: PAIN
     Route: 048
     Dates: start: 2015
  12. OXYCODONE [Concomitant]
     Active Substance: OXYCODONE
     Indication: PAIN
     Dosage: 30.0MG AS REQUIRED
     Route: 048
     Dates: start: 2015
  13. GABAPENTIN. [Concomitant]
     Active Substance: GABAPENTIN
     Indication: NEURALGIA
     Route: 048
     Dates: start: 2010
  14. ALBUTEROL BROMIDE VIA NEBULIZER [Concomitant]
     Dosage: AS NEEDED UP TO 4 TIMES PER DAY
     Route: 055
  15. GABAPENTIN. [Concomitant]
     Active Substance: GABAPENTIN
     Indication: DEPRESSION
     Route: 048
     Dates: start: 2010
  16. CLOZAPAM [Concomitant]
     Indication: HEART RATE ABNORMAL
     Route: 048
     Dates: start: 2010
  17. CLOZAPAM [Concomitant]
     Indication: ANXIETY
     Route: 048
     Dates: start: 2010

REACTIONS (7)
  - Dyspnoea [Unknown]
  - Lung neoplasm malignant [Not Recovered/Not Resolved]
  - Pain [Unknown]
  - Drug dose omission [Not Recovered/Not Resolved]
  - Intentional product use issue [Unknown]
  - Asthma [Not Recovered/Not Resolved]
  - Malignant neoplasm progression [Not Recovered/Not Resolved]

NARRATIVE: CASE EVENT DATE: 2012
